FAERS Safety Report 9210327 (Version 3)
Quarter: 2013Q2

REPORT INFORMATION
  Report Type: Report from Study
  Country: US (occurrence: US)
  Receive Date: 20130404
  Receipt Date: 20130422
  Transmission Date: 20140414
  Serious: Yes (Death)
  Sender: FDA-Public Use
  Company Number: US-ROCHE-1210165

PATIENT
  Age: 87 Year
  Sex: Female
  Weight: 54.03 kg

DRUGS (1)
  1. XELODA [Suspect]
     Indication: COLON CANCER
     Route: 048
     Dates: start: 20120603, end: 201209

REACTIONS (3)
  - Large intestine perforation [Fatal]
  - Sepsis [Fatal]
  - Disease progression [Recovered/Resolved]
